FAERS Safety Report 17791308 (Version 1)
Quarter: 2020Q2

REPORT INFORMATION
  Report Type: Report from Study
  Country: US (occurrence: US)
  Receive Date: 20200515
  Receipt Date: 20200515
  Transmission Date: 20200714
  Serious: Yes (Hospitalization)
  Sender: FDA-Public Use
  Company Number: US-ROCHE-2582790

PATIENT
  Sex: Male

DRUGS (1)
  1. ESBRIET [Suspect]
     Active Substance: PIRFENIDONE
     Indication: IDIOPATHIC PULMONARY FIBROSIS
     Route: 065

REACTIONS (10)
  - Oxygen therapy [Unknown]
  - Staphylococcal infection [Unknown]
  - Dyspnoea [Unknown]
  - Urinary tract infection [Unknown]
  - Ageusia [Unknown]
  - Malaise [Unknown]
  - Anosmia [Unknown]
  - Pneumonia [Unknown]
  - Gastrointestinal disorder [Unknown]
  - Decreased appetite [Unknown]
